FAERS Safety Report 4890965-6 (Version None)
Quarter: 2006Q1

REPORT INFORMATION
  Report Type: 
  Country: None (occurrence: None)
  Receive Date: 20060123
  Receipt Date: 20060112
  Transmission Date: 20060701
  Serious: Yes (Other)
  Sender: FDA-Public Use
  Company Number: 2006005011

PATIENT
  Age: 66 Year
  Sex: Male
  Weight: 106.5953 kg

DRUGS (3)
  1. NORVASC [Suspect]
     Indication: HYPERTENSION
     Dosage: 5 MG (5 MG, 1 IN 1 D), ORAL; 7 OR 8 YEARS AGO
     Route: 048
  2. XANAX [Suspect]
     Indication: ILL-DEFINED DISORDER
     Dosage: 1 MG ( 1 IN 1 D),
  3. NEXIUM [Suspect]
     Indication: ILL-DEFINED DISORDER

REACTIONS (4)
  - BLOOD PRESSURE INCREASED [None]
  - ERECTILE DYSFUNCTION [None]
  - EXTRASYSTOLES [None]
  - STRESS [None]
